FAERS Safety Report 6269040-4 (Version None)
Quarter: 2009Q3

REPORT INFORMATION
  Report Type: 
  Country: None (occurrence: None)
  Receive Date: 20090715
  Receipt Date: 20090707
  Transmission Date: 20100115
  Serious: Yes (Other)
  Sender: FDA-Public Use
  Company Number: B0582486A

PATIENT
  Age: 60 Year
  Sex: Male
  Weight: 73.02 kg

DRUGS (2)
  1. ROPINIROLE [Suspect]
     Indication: PARKINSON'S DISEASE
     Dosage: 18MG PER DAY
     Route: 048
     Dates: start: 20090201
  2. SINEMET [Concomitant]

REACTIONS (2)
  - AGGRESSION [None]
  - DELUSIONAL DISORDER, PERSECUTORY TYPE [None]
